FAERS Safety Report 7147604-3 (Version None)
Quarter: 2010Q4

REPORT INFORMATION
  Report Type: 
  Country: None (occurrence: None)
  Receive Date: 20101209
  Receipt Date: 20101129
  Transmission Date: 20110411
  Serious: No
  Sender: FDA-Public Use
  Company Number: US-BIOGENIDEC-2010BI042092

PATIENT
  Sex: Male

DRUGS (2)
  1. TYSABRI [Suspect]
     Indication: MULTIPLE SCLEROSIS
     Route: 042
     Dates: start: 20100402
  2. TYSABRI [Suspect]
     Route: 042
     Dates: start: 20080611, end: 20080611

REACTIONS (5)
  - BACK PAIN [None]
  - DIARRHOEA [None]
  - MOBILITY DECREASED [None]
  - NASOPHARYNGITIS [None]
  - NECK PAIN [None]
